FAERS Safety Report 11626574 (Version 2)
Quarter: 2015Q4

REPORT INFORMATION
  Report Type: Report from Study
  Country: JP (occurrence: JP)
  Receive Date: 20151013
  Receipt Date: 20151014
  Transmission Date: 20160304
  Serious: Yes (Hospitalization)
  Sender: FDA-Public Use
  Company Number: JP-ROCHE-1644235

PATIENT
  Age: 81 Year
  Sex: Female

DRUGS (30)
  1. PERTUZUMAB [Suspect]
     Active Substance: PERTUZUMAB
     Indication: BREAST CANCER
     Dosage: 420 MG/ 14 ML
     Route: 041
     Dates: start: 20150924
  2. DOMPERIDONE [Concomitant]
     Active Substance: DOMPERIDONE
     Dosage: DOSAGE IS UNCERTAIN.
     Route: 048
  3. ALOXI [Concomitant]
     Active Substance: PALONOSETRON HYDROCHLORIDE
     Dosage: DOSAGE WAS UNCERTAIN.
     Route: 042
     Dates: start: 20150901
  4. PYDOXAL [Concomitant]
     Active Substance: PYRIDOXAL
     Dosage: DOSAGE WAS UNCERTAIN.
     Route: 048
     Dates: start: 20150907
  5. TAPENTADOL [Suspect]
     Active Substance: TAPENTADOL
     Indication: BREAST CANCER
     Dosage: DOSAGE WAS UNCERTAIN.
     Route: 048
  6. NOVAMIN (JAPAN) [Concomitant]
     Dosage: DOSAGE WAS UNCERTAIN.
     Route: 048
  7. NEXIUM [Concomitant]
     Active Substance: ESOMEPRAZOLE MAGNESIUM
     Dosage: DOSAGE WAS UNCERTAIN.
     Route: 048
     Dates: start: 20150902
  8. ENSURE.H [Concomitant]
     Dosage: DOSAGE WAS UNCERTAIN.
     Route: 065
     Dates: start: 20150915
  9. TRASTUZUMAB [Suspect]
     Active Substance: TRASTUZUMAB
     Indication: BREAST CANCER
     Route: 041
     Dates: start: 20150924
  10. PERTUZUMAB [Suspect]
     Active Substance: PERTUZUMAB
     Indication: BREAST CANCER
     Dosage: 420 MG/14 ML
     Route: 041
     Dates: start: 20150901, end: 20150901
  11. TRASTUZUMAB [Suspect]
     Active Substance: TRASTUZUMAB
     Indication: BREAST CANCER
     Route: 041
     Dates: start: 20150901, end: 20150901
  12. MAGMITT [Concomitant]
     Active Substance: MAGNESIUM OXIDE
     Dosage: DOSAGE WAS UNCERTAIN.
     Route: 048
  13. NIFEDIPINE CR [Concomitant]
     Active Substance: NIFEDIPINE
     Dosage: DOSAGE WAS UNCERTAIN.
     Route: 048
     Dates: start: 20150901, end: 20150908
  14. AZUNOL GARGLE [Concomitant]
     Dosage: DOSAGE WAS UNCERTAIN.
     Route: 049
     Dates: start: 20150907
  15. LECICARBON [Concomitant]
     Active Substance: SODIUM BICARBONATE\SODIUM PHOSPHATE, MONOBASIC
     Dosage: DOSAGE WAS UNCERTAIN.
     Route: 054
     Dates: start: 20150914
  16. OXINORM (JAPAN) [Concomitant]
     Dosage: DOSAGE WAS UNCERTAIN.
     Route: 048
  17. OLMETEC [Concomitant]
     Active Substance: OLMESARTAN MEDOXOMIL
     Dosage: DOSAGE WAS UNCERTAIN.
     Route: 048
     Dates: start: 20150901, end: 20150908
  18. SENNOSIDE [Concomitant]
     Active Substance: SENNOSIDES
     Dosage: DOSAGE IS UNCERTAIN.
     Route: 048
  19. DEXALTIN [Concomitant]
     Active Substance: DEXAMETHASONE
     Dosage: DOSAGE WAS UNCERTAIN.
     Route: 061
     Dates: start: 20150907
  20. DOCETAXEL. [Suspect]
     Active Substance: DOCETAXEL
     Indication: BREAST CANCER
     Route: 041
     Dates: start: 20150924
  21. DECADRON [Concomitant]
     Active Substance: DEXAMETHASONE
     Dosage: DOSAGE WAS UNCERTAIN.
     Route: 065
     Dates: start: 20150901
  22. DECADRON [Concomitant]
     Active Substance: DEXAMETHASONE
     Dosage: DOSAGE IS UNCERTAIN.
     Route: 048
     Dates: start: 20150902
  23. G-LASTA [Concomitant]
     Active Substance: PEGFILGRASTIM
     Dosage: DOSAGE WAS UNCERTAIN.
     Route: 058
     Dates: start: 20150902
  24. LEVOFLOXACIN HEMIHYDRATE [Concomitant]
     Active Substance: LEVOFLOXACIN
     Dosage: DOSAGE WAS UNCERTAIN.
     Route: 048
     Dates: start: 20150909, end: 20150911
  25. DOCETAXEL. [Suspect]
     Active Substance: DOCETAXEL
     Indication: BREAST CANCER
     Route: 041
     Dates: start: 20150901, end: 20150901
  26. HYPEN (JAPAN) [Concomitant]
     Dosage: DOSAGE WAS UNCERTAIN.
     Route: 065
  27. OLMETEC [Concomitant]
     Active Substance: OLMESARTAN MEDOXOMIL
     Dosage: DOSAGE WAS UNCERTAIN.
     Route: 048
     Dates: start: 20150910
  28. LOXOPROFEN [Concomitant]
     Active Substance: LOXOPROFEN
     Dosage: DOSAGE WAS UNCERTAIN.
     Route: 048
  29. JUSO [Concomitant]
     Active Substance: SODIUM BICARBONATE
     Dosage: DOSAGE WAS UNCERTAIN.
     Route: 065
     Dates: start: 20150907
  30. BROTIZOLAM [Concomitant]
     Active Substance: BROTIZOLAM
     Dosage: DOSAGE WAS UNCERTAIN.
     Route: 048
     Dates: start: 20150911

REACTIONS (1)
  - Atrial fibrillation [Recovered/Resolved]

NARRATIVE: CASE EVENT DATE: 20151004
